FAERS Safety Report 6176288-6 (Version None)
Quarter: 2009Q2

REPORT INFORMATION
  Report Type: 
  Country: None (occurrence: None)
  Receive Date: 20090501
  Receipt Date: 20090424
  Transmission Date: 20091009
  Serious: Yes (Hospitalization, Other)
  Sender: FDA-Public Use
  Company Number: DK-ABBOTT-09P-044-0502309-00

PATIENT
  Sex: Female

DRUGS (4)
  1. HUMIRA [Suspect]
     Indication: PSORIASIS
     Dosage: 14MG EVERY OTHER WEEK
     Route: 058
     Dates: start: 20080514
  2. HUMIRA [Suspect]
     Dates: start: 20081001
  3. HUMIRA [Suspect]
     Indication: PSORIASIS
     Dates: start: 20090422
  4. ORAL CONTRACEPTIVE NOS [Concomitant]
     Indication: PREGNANCY
     Route: 048

REACTIONS (3)
  - INJECTION SITE PAIN [None]
  - PHARYNGITIS [None]
  - TONSILLAR HYPERTROPHY [None]
